FAERS Safety Report 10891151 (Version 1)
Quarter: 2015Q1

REPORT INFORMATION
  Report Type: Spontaneous
  Country: US (occurrence: US)
  Receive Date: 20150305
  Receipt Date: 20150305
  Transmission Date: 20150721
  Serious: Yes (Other)
  Sender: FDA-Public Use
  Company Number: US-009507513-1503USA001367

PATIENT
  Sex: Female

DRUGS (1)
  1. IMPLANON [Suspect]
     Active Substance: ETONOGESTREL
     Indication: PRODUCT USED FOR UNKNOWN INDICATION
     Dosage: UNK
     Route: 059
     Dates: start: 20121130

REACTIONS (6)
  - Surgery [Unknown]
  - Device difficult to use [Unknown]
  - Procedural complication [Unknown]
  - Device dislocation [Not Recovered/Not Resolved]
  - Device difficult to use [Unknown]
  - Device dislocation [Unknown]

NARRATIVE: CASE EVENT DATE: 201305
